FAERS Safety Report 26122909 (Version 1)
Quarter: 2025Q4

REPORT INFORMATION
  Report Type: Spontaneous
  Country: EU (occurrence: EU)
  Receive Date: 20251204
  Receipt Date: 20251204
  Transmission Date: 20260118
  Serious: Yes (Disabling)
  Sender: GILEAD
  Company Number: None

PATIENT
  Age: 53 Year
  Sex: Female
  Weight: 105 kg

DRUGS (2)
  1. TRODELVY [Suspect]
     Active Substance: SACITUZUMAB GOVITECAN-HZIY
     Indication: Triple negative breast cancer
     Dosage: 1080 MG, Q1MONTH
     Route: 042
     Dates: start: 20250624, end: 20250812
  2. ADRIAMYCIN [Suspect]
     Active Substance: DOXORUBICIN HYDROCHLORIDE
     Indication: Triple negative breast cancer
     Dosage: 60 MG/M2
     Route: 042
     Dates: start: 20231220, end: 20240220

REACTIONS (1)
  - Ejection fraction decreased [Unknown]

NARRATIVE: CASE EVENT DATE: 20250820
